FAERS Safety Report 8107142-8 (Version None)
Quarter: 2012Q1

REPORT INFORMATION
  Report Type: 
  Country: None (occurrence: None)
  Receive Date: 20120202
  Receipt Date: 20120130
  Transmission Date: 20120608
  Serious: Yes (Life-Threatening, Hospitalization, Other)
  Sender: FDA-Public Use
  Company Number: DE-PFIZER INC-2010058468

PATIENT
  Age: 73 Year
  Sex: Female

DRUGS (8)
  1. BISOPROLOL [Concomitant]
     Dosage: 5 MG, DAILY
  2. RAMIPRIL [Suspect]
     Indication: HYPERTENSION
     Dosage: 5 MG, 2X/DAY
     Route: 048
     Dates: start: 20090201, end: 20100108
  3. SPIRONOLACTONE [Suspect]
     Indication: HYPERTENSION
     Dosage: 25 MG, DAILY
     Route: 048
     Dates: start: 20091201, end: 20100108
  4. AMIODARONE HCL [Suspect]
     Indication: TACHYCARDIA
     Dosage: 200 MG, DAILY
     Route: 048
     Dates: start: 20090201
  5. SIMVASTATIN [Concomitant]
     Dosage: 20 MG, DAILY
     Dates: start: 20090317
  6. LEVOTHYROXINE SODIUM [Concomitant]
     Dosage: 75 UG, DAILY
     Dates: start: 20090317
  7. ACETYLSALICYLIC ACID [Concomitant]
     Dosage: 100 MG, DAILY
  8. AMLODIPINE [Concomitant]
     Dosage: 5 MG, DAILY

REACTIONS (8)
  - HYPONATRAEMIA [None]
  - DIZZINESS [None]
  - ASTHENIA [None]
  - VOMITING [None]
  - HYPOTHYROIDISM [None]
  - SYNCOPE [None]
  - HEADACHE [None]
  - NAUSEA [None]
